FAERS Safety Report 8122194-7 (Version None)
Quarter: 2012Q1

REPORT INFORMATION
  Report Type: 
  Country: None (occurrence: None)
  Receive Date: 20120208
  Receipt Date: 20120130
  Transmission Date: 20120608
  Serious: Yes (Disabling, Other)
  Sender: FDA-Public Use
  Company Number: US-BAYER-2011-068390

PATIENT
  Age: 50 Year
  Sex: Female
  Weight: 149.66 kg

DRUGS (12)
  1. CYMBALTA [Concomitant]
     Indication: DEPRESSION
  2. YASMIN [Suspect]
     Indication: MENORRHAGIA
     Dosage: UNK
     Dates: start: 20060801, end: 20091001
  3. OXYBUTYNIN [Concomitant]
     Indication: HYPERTONIC BLADDER
     Dosage: 5 MG, BID
     Dates: start: 20070101
  4. CYCLOBENZAPRINE [Concomitant]
     Dosage: 10 MG, UNK
     Dates: start: 20090201
  5. CYMBALTA [Concomitant]
     Indication: FIBROMYALGIA
     Dosage: 30 MG, UNK
     Dates: start: 20070101
  6. VICODIN [Concomitant]
     Indication: PAIN
     Dosage: UNK
     Dates: start: 20070101
  7. MORPHINE [Concomitant]
     Indication: PAIN
     Dosage: UNK
     Dates: start: 20070101
  8. LORATADINE [Concomitant]
     Dosage: 10 MG, UNK
     Dates: start: 20090205
  9. YAZ [Suspect]
     Indication: MENORRHAGIA
     Dosage: UNK
     Dates: start: 20060801, end: 20091001
  10. ALBUTEROL [Concomitant]
     Dosage: UNK UNK, PRN
     Dates: start: 20060101
  11. NAPROXEN [Concomitant]
     Dosage: 500 MG, UNK
     Dates: start: 20090205
  12. LIDODERM [Concomitant]
     Dosage: UNK
     Dates: start: 20090313

REACTIONS (5)
  - PAIN [None]
  - DEFORMITY [None]
  - INJURY [None]
  - GALLBLADDER DISORDER [None]
  - CHOLECYSTITIS ACUTE [None]
